FAERS Safety Report 10387831 (Version 1)
Quarter: 2014Q1

REPORT INFORMATION
  Report Type: Spontaneous
  Country: US (occurrence: None)
  Receive Date: 20140306
  Receipt Date: 20140306
  Transmission Date: 20141002
  Serious: Yes (Other)
  Sender: FDA-Public Use
  Company Number: 163-21880-13080350

PATIENT
  Age: 71 Year
  Sex: Female

DRUGS (9)
  1. METOPROLOL TARTRATE (METOPROLOL TARTRATE) [Concomitant]
  2. MULTIVITAMINS (MULTIVITAMINS) [Concomitant]
  3. NISOLDIPINE ER (NISOLDIPINE) [Concomitant]
  4. PRILOSEC (OMEPRAZOLE) [Concomitant]
  5. TRAMADOL (TRAMADOL) [Concomitant]
  6. REVLIMID (LENALIDOMIDE) (25 MILLIGRAM, CAPSULES) [Suspect]
     Indication: PLASMA CELL MYELOMA
     Dosage: 25 MG, 21 IN 28 D, PO
     Route: 048
     Dates: start: 20130422, end: 20130620
  7. DEXAMETHASONE (DEXAMETHASONE) [Concomitant]
  8. FISH OIL (FISH OIL) [Concomitant]
  9. IRON (IRON) [Concomitant]

REACTIONS (3)
  - Muscular weakness [None]
  - Myalgia [None]
  - Fatigue [None]
